FAERS Safety Report 9657090 (Version 1)
Quarter: 2013Q4

REPORT INFORMATION
  Report Type: Spontaneous
  Country: US (occurrence: US)
  Receive Date: 20131030
  Receipt Date: 20131030
  Transmission Date: 20140711
  Serious: Yes (Hospitalization)
  Sender: FDA-Public Use
  Company Number: US-PURDUE-USA-2013-0107903

PATIENT
  Sex: Female

DRUGS (1)
  1. OXYCONTIN (NDA 22-272) [Suspect]
     Indication: BLADDER CANCER
     Dosage: 80 MG, TID
     Route: 048
     Dates: start: 2003

REACTIONS (1)
  - Malignant neoplasm progression [Recovered/Resolved]
